FAERS Safety Report 10713608 (Version 1)
Quarter: 2015Q1

REPORT INFORMATION
  Report Type: Report from Study
  Country: US (occurrence: US)
  Receive Date: 20150115
  Receipt Date: 20150115
  Transmission Date: 20150721
  Serious: Yes (Other)
  Sender: FDA-Public Use
  Company Number: US-SA-2014SA120942

PATIENT
  Sex: Female

DRUGS (1)
  1. AUBAGIO [Suspect]
     Active Substance: TERIFLUNOMIDE
     Indication: MULTIPLE SCLEROSIS
     Route: 048
     Dates: start: 20140810

REACTIONS (12)
  - Abdominal pain upper [Unknown]
  - Dry skin [Unknown]
  - Flatulence [Unknown]
  - Eructation [Unknown]
  - Fall [Unknown]
  - Contusion [Unknown]
  - Thyroid neoplasm [Unknown]
  - Vaginal discharge [Unknown]
  - Postmenopausal haemorrhage [Unknown]
  - Headache [Not Recovered/Not Resolved]
  - Memory impairment [Unknown]
  - Hypoaesthesia [Not Recovered/Not Resolved]
